FAERS Safety Report 24434783 (Version 1)
Quarter: 2024Q4

REPORT INFORMATION
  Report Type: Spontaneous
  Country: FR (occurrence: FR)
  Receive Date: 20241014
  Receipt Date: 20241014
  Transmission Date: 20250115
  Serious: Yes (Hospitalization, Other)
  Sender: TEVA
  Company Number: None

PATIENT
  Age: 18 Year
  Sex: Male

DRUGS (4)
  1. ALPRAZOLAM [Suspect]
     Active Substance: ALPRAZOLAM
     Indication: Product used for unknown indication
     Route: 048
     Dates: start: 2024, end: 20240912
  2. CANNABIS SATIVA SUBSP. INDICA TOP [Suspect]
     Active Substance: CANNABIS SATIVA SUBSP. INDICA TOP
     Indication: Product used for unknown indication
     Dosage: 5 JOINTS PER DAY OF ^DRY^ OR ^STATIC^ DOSED AT 40% THC
     Route: 065
     Dates: start: 2022
  3. ACETAMINOPHEN\OPIUM [Suspect]
     Active Substance: ACETAMINOPHEN\OPIUM
     Indication: Product used for unknown indication
     Dosage: 4/ DAY ALTERNATING WITH SMOKED OPIUM (EQUIVALENT TO 100 MG OF OPIUM/DAY);IZALGI 500 MG/25 MG
     Route: 048
     Dates: start: 202408, end: 20240912
  4. OPIUM [Suspect]
     Active Substance: OPIUM
     Indication: Product used for unknown indication
     Route: 065
     Dates: start: 202408, end: 20240912

REACTIONS (4)
  - Suicidal ideation [Recovered/Resolved]
  - Substance use disorder [Recovering/Resolving]
  - Hallucination, auditory [Recovering/Resolving]
  - Drug use disorder [Recovering/Resolving]

NARRATIVE: CASE EVENT DATE: 20220101
